FAERS Safety Report 26097790 (Version 1)
Quarter: 2025Q4

REPORT INFORMATION
  Report Type: Spontaneous
  Country: CA (occurrence: CA)
  Receive Date: 20251127
  Receipt Date: 20251127
  Transmission Date: 20260118
  Serious: Yes (Other)
  Sender: CELLTRION
  Company Number: CA-CELLTRION INC.-2025CA042379

PATIENT

DRUGS (1)
  1. OMALIZUMAB [Suspect]
     Active Substance: OMALIZUMAB
     Indication: Asthma
     Dosage: 375.0 MILLIGRAM
     Route: 058

REACTIONS (12)
  - Chest discomfort [Recovering/Resolving]
  - Choking [Recovering/Resolving]
  - Dyspnoea [Recovering/Resolving]
  - Migraine [Recovering/Resolving]
  - Mouth swelling [Recovering/Resolving]
  - Oropharyngeal swelling [Recovering/Resolving]
  - Swollen tongue [Recovering/Resolving]
  - Erythema [Recovering/Resolving]
  - Gastrointestinal pain [Recovering/Resolving]
  - Hypotension [Recovering/Resolving]
  - Anaphylactic reaction [Recovering/Resolving]
  - Flushing [Recovering/Resolving]
